FAERS Safety Report 8089972-4 (Version None)
Quarter: 2012Q1

REPORT INFORMATION
  Report Type: 
  Country: None (occurrence: None)
  Receive Date: 20120129
  Receipt Date: 20110923
  Transmission Date: 20120608
  Serious: No
  Sender: FDA-Public Use
  Company Number: US-ABBOTT-11P-163-0857284-00

PATIENT
  Sex: Male
  Weight: 108.96 kg

DRUGS (2)
  1. HUMIRA [Suspect]
     Indication: PSORIATIC ARTHROPATHY
     Route: 058
     Dates: start: 20110401
  2. HUMIRA [Suspect]
     Indication: PSORIASIS

REACTIONS (3)
  - OEDEMA PERIPHERAL [None]
  - FEELING HOT [None]
  - PAIN IN EXTREMITY [None]
